FAERS Safety Report 6507636-2 (Version None)
Quarter: 2009Q4

REPORT INFORMATION
  Report Type: 
  Country: None (occurrence: None)
  Receive Date: 20091221
  Receipt Date: 20091030
  Transmission Date: 20100525
  Serious: Yes (Other)
  Sender: FDA-Public Use
  Company Number: US-BRISTOL-MYERS SQUIBB COMPANY-14839013

PATIENT
  Age: 54 Year
  Sex: Female

DRUGS (4)
  1. PRAVACHOL [Suspect]
     Indication: BLOOD CHOLESTEROL INCREASED
     Dosage: INITIATED AT 10MG
  2. NORVASC [Concomitant]
  3. AMBIEN [Concomitant]
  4. VITAMINS [Concomitant]

REACTIONS (1)
  - AUTOIMMUNE HEPATITIS [None]
